FAERS Safety Report 19648876 (Version 1)
Quarter: 2021Q3

REPORT INFORMATION
  Report Type: Other
  Country: PL (occurrence: PL)
  Receive Date: 20210803
  Receipt Date: 20210803
  Transmission Date: 20211014
  Serious: Yes (Other)
  Sender: FDA-Public Use
  Company Number: PL-DENTSPLY-2021SCDP000215

PATIENT
  Sex: Male

DRUGS (1)
  1. MEPIVACAINE [Suspect]
     Active Substance: MEPIVACAINE HYDROCHLORIDE
     Indication: DENTAL LOCAL ANAESTHESIA
     Dosage: UNK
     Dates: start: 201807

REACTIONS (6)
  - Electrocardiogram ST-T segment depression [None]
  - Dyspnoea [None]
  - Cardiac disorder [None]
  - Peripheral coldness [None]
  - Malaise [None]
  - Angina pectoris [None]

NARRATIVE: CASE EVENT DATE: 201807
